FAERS Safety Report 5573044-4 (Version None)
Quarter: 2007Q4

REPORT INFORMATION
  Report Type: 
  Country: None (occurrence: None)
  Receive Date: 20071224
  Receipt Date: 20071212
  Transmission Date: 20080405
  Serious: Yes (Other)
  Sender: FDA-Public Use
  Company Number: FI-ROCHE-536444

PATIENT
  Age: 16 Year
  Sex: Female

DRUGS (1)
  1. ROACCUTAN [Suspect]
     Indication: ACNE
     Route: 065
     Dates: start: 20070926, end: 20071212

REACTIONS (4)
  - FALL [None]
  - FATIGUE [None]
  - HEADACHE [None]
  - MEMORY IMPAIRMENT [None]
